FAERS Safety Report 5525799-2 (Version None)
Quarter: 2007Q4

REPORT INFORMATION
  Report Type: 
  Country: None (occurrence: None)
  Receive Date: 20071126
  Receipt Date: 20071029
  Transmission Date: 20080405
  Serious: Yes (Death, Hospitalization)
  Sender: FDA-Public Use
  Company Number: PHHO2007NL00526

PATIENT
  Age: 58 Year
  Sex: Male
  Weight: 70 kg

DRUGS (1)
  1. ALDESLEUKIN [Suspect]
     Indication: ACUTE MYELOID LEUKAEMIA
     Dosage: 8
     Dates: start: 20061030, end: 20061201

REACTIONS (11)
  - APHASIA [None]
  - CEREBRAL INFARCTION [None]
  - COMA [None]
  - CONFUSIONAL STATE [None]
  - DYSPNOEA [None]
  - ESCHERICHIA SEPSIS [None]
  - HAEMORRHAGE INTRACRANIAL [None]
  - HEADACHE [None]
  - IDIOPATHIC THROMBOCYTOPENIC PURPURA [None]
  - PLATELET COUNT DECREASED [None]
  - SUBDURAL HAEMATOMA [None]
